FAERS Safety Report 5945731-7 (Version None)
Quarter: 2008Q4

REPORT INFORMATION
  Report Type: 
  Country: None (occurrence: None)
  Receive Date: 20081105
  Receipt Date: 20081027
  Transmission Date: 20090506
  Serious: Yes (Death)
  Sender: FDA-Public Use
  Company Number: 2008JP005100

PATIENT
  Age: 53 Year
  Sex: Male

DRUGS (3)
  1. CEFTIZOXIME (UNSPECIFIED) (CEFTIZOXIME) INJECTION [Suspect]
     Indication: PNEUMONIA
     Dates: start: 20081008, end: 20081021
  2. CEFTIZOXIME (UNSPECIFIED) (CEFTIZOXIME) INJECTION [Suspect]
     Indication: PNEUMONIA
     Dates: start: 20081025, end: 20081025
  3. AMIKACIN [Concomitant]

REACTIONS (4)
  - DISCOMFORT [None]
  - ERYTHEMA [None]
  - PNEUMONIA [None]
  - SHOCK [None]
